FAERS Safety Report 7304260-9 (Version None)
Quarter: 2011Q1

REPORT INFORMATION
  Report Type: 
  Country: None (occurrence: None)
  Receive Date: 20110221
  Receipt Date: 20110208
  Transmission Date: 20110831
  Serious: Yes (Other)
  Sender: FDA-Public Use
  Company Number: PHHY2011JP10640

PATIENT
  Age: 69 Year
  Sex: Male

DRUGS (3)
  1. RASILEZ [Suspect]
     Indication: HYPERTENSION
     Dosage: 150 MG, DAILY
     Route: 048
  2. ZYLORIC [Suspect]
     Route: 048
  3. ADALAT [Concomitant]

REACTIONS (1)
  - GENERALISED ERYTHEMA [None]
